FAERS Safety Report 4818501-0 (Version None)
Quarter: 2005Q4

REPORT INFORMATION
  Report Type: 
  Country: None (occurrence: None)
  Receive Date: 20051102
  Receipt Date: 20051025
  Transmission Date: 20060501
  Serious: Yes (Hospitalization)
  Sender: FDA-Public Use
  Company Number: CH-ABBOTT-05P-151-0315172-00

PATIENT
  Age: 28 Year
  Sex: Male

DRUGS (5)
  1. DEPAKENE [Suspect]
     Indication: AFFECTIVE DISORDER
     Route: 048
     Dates: start: 20050701, end: 20050819
  2. FLUVOXAMINE MALEATE [Concomitant]
     Indication: MENTAL DISORDER
     Route: 048
  3. CHLORPROTHIXENE HYDROCHLORIDE [Concomitant]
     Indication: MENTAL DISORDER
     Route: 048
  4. DEFALGAN [Concomitant]
     Indication: PYREXIA
     Route: 048
  5. CLARITHROMYCIN [Concomitant]
     Indication: ASTHENIA
     Route: 048

REACTIONS (10)
  - ASTHENIA [None]
  - BLOOD LACTATE DEHYDROGENASE INCREASED [None]
  - CHILLS [None]
  - DRUG HYPERSENSITIVITY [None]
  - HEPATIC ENZYME INCREASED [None]
  - HISTIOCYTOSIS HAEMATOPHAGIC [None]
  - PYREXIA [None]
  - RASH [None]
  - SERUM FERRITIN INCREASED [None]
  - THROMBOCYTOPENIA [None]
